FAERS Safety Report 12595557 (Version 2)
Quarter: 2016Q3

REPORT INFORMATION
  Report Type: Spontaneous
  Country: DE (occurrence: DE)
  Receive Date: 20160726
  Receipt Date: 20160916
  Transmission Date: 20161109
  Serious: Yes (Other)
  Sender: FDA-Public Use
  Company Number: DE-CELGENEUS-DEU-2016073375

PATIENT
  Age: 53 Year
  Sex: Male

DRUGS (1)
  1. OTEZLA [Suspect]
     Active Substance: APREMILAST
     Indication: PSORIASIS
     Dosage: 60 MILLIGRAM
     Route: 048
     Dates: start: 20160606, end: 20160801

REACTIONS (4)
  - Thrombocytopenia [Unknown]
  - Leukopenia [Recovered/Resolved]
  - Hepatic function abnormal [Recovered/Resolved]
  - Bronchitis chronic [Not Recovered/Not Resolved]
